FAERS Safety Report 7830906-2 (Version None)
Quarter: 2011Q4

REPORT INFORMATION
  Report Type: 
  Country: None (occurrence: None)
  Receive Date: 20111021
  Receipt Date: 20111014
  Transmission Date: 20120403
  Serious: No
  Sender: FDA-Public Use
  Company Number: US-PFIZER INC-2011187108

PATIENT
  Age: 76 Year
  Sex: Female

DRUGS (1)
  1. ESTRING [Suspect]
     Indication: VULVOVAGINAL DRYNESS
     Dosage: UNK

REACTIONS (2)
  - VULVOVAGINAL PAIN [None]
  - VULVOVAGINAL DISCOMFORT [None]
